FAERS Safety Report 24573862 (Version 3)
Quarter: 2025Q3

REPORT INFORMATION
  Report Type: Spontaneous
  Country: GB (occurrence: GB)
  Receive Date: 20241103
  Receipt Date: 20250805
  Transmission Date: 20251020
  Serious: Yes (Other)
  Sender: AMGEN
  Company Number: GB-Vifor (International) Inc.-VIT-2024-09791

PATIENT
  Age: 77 Year
  Sex: Female
  Weight: 70.3 kg

DRUGS (7)
  1. TAVNEOS [Suspect]
     Active Substance: AVACOPAN
     Indication: Anti-neutrophil cytoplasmic antibody positive vasculitis
     Dosage: 30,MG,QD
     Route: 048
     Dates: start: 20240709, end: 20250715
  2. RITUXIMAB [Concomitant]
     Active Substance: RITUXIMAB
     Indication: Anti-neutrophil cytoplasmic antibody positive vasculitis
     Dosage: COMPLETION OF PLANNED COURSE
     Route: 048
     Dates: start: 20240711, end: 20240711
  3. RITUXIMAB [Concomitant]
     Active Substance: RITUXIMAB
     Dosage: COMPLETION OF PLANNED COURSE
     Route: 048
     Dates: start: 20240711, end: 20240726
  4. RITUXIMAB [Concomitant]
     Active Substance: RITUXIMAB
     Route: 048
     Dates: start: 20250128, end: 20250128
  5. RITUXIMAB [Concomitant]
     Active Substance: RITUXIMAB
     Route: 048
     Dates: start: 20250729, end: 20250729
  6. PREDNISOLONE [Concomitant]
     Active Substance: PREDNISOLONE
     Indication: Anti-neutrophil cytoplasmic antibody positive vasculitis
     Dosage: COMPLETION OF PLANNED COURSE
     Route: 048
     Dates: start: 20240702, end: 20240708
  7. PREDNISOLONE [Concomitant]
     Active Substance: PREDNISOLONE
     Dosage: COMPLETION OF PLANNED COURSE
     Route: 048
     Dates: start: 20240709, end: 20240715

REACTIONS (1)
  - Lumbar vertebral fracture [Recovered/Resolved]

NARRATIVE: CASE EVENT DATE: 20240829
